FAERS Safety Report 5004231-1 (Version None)
Quarter: 2006Q2

REPORT INFORMATION
  Report Type: 
  Country: None (occurrence: None)
  Receive Date: 20060517
  Receipt Date: 20050202
  Transmission Date: 20061013
  Serious: Yes (Hospitalization)
  Sender: FDA-Public Use
  Company Number: US-MERCK-0502USA02984

PATIENT
  Age: 66 Year
  Sex: Male
  Weight: 68 kg

DRUGS (28)
  1. VIOXX [Suspect]
     Indication: ARTHRITIS
     Route: 048
     Dates: start: 19990716, end: 20040801
  2. VIOXX [Suspect]
     Indication: PAIN
     Route: 048
     Dates: start: 19990716, end: 20040801
  3. PRAVACHOL [Concomitant]
     Route: 065
  4. METOPROLOL TARTRATE [Concomitant]
     Route: 065
  5. PLAVIX [Concomitant]
     Route: 065
  6. NITROQUICK [Concomitant]
     Route: 065
  7. ACETAMINOPHEN AND CODEINE [Concomitant]
     Route: 065
  8. RELAFEN [Concomitant]
     Route: 065
  9. NEURONTIN [Concomitant]
     Route: 065
  10. ZITHROMAX [Concomitant]
     Route: 065
  11. PREDNISONE [Concomitant]
     Route: 065
  12. CEFTIN [Concomitant]
     Route: 065
  13. FLAGYL [Concomitant]
     Route: 065
  14. CIPRO [Concomitant]
     Route: 065
  15. NABUMETONE [Concomitant]
     Route: 065
  16. COLCHICINE [Concomitant]
     Route: 065
  17. PROPOXYPHENE NAPSYLATE [Concomitant]
     Route: 065
  18. HYDROCODONE BITARTRATE + ACETAMINOPHEN [Concomitant]
     Route: 065
  19. HYOSCYAMINE SULFATE [Concomitant]
     Route: 065
  20. CIPROFLOXACIN HYDROCHLORIDE [Concomitant]
     Route: 065
  21. HYDROCHLOROTHIAZIDE AND TRIAMTERENE [Concomitant]
     Route: 065
  22. VIAGRA [Concomitant]
     Route: 065
  23. CLOBETASOL PROPIONATE [Concomitant]
     Route: 065
  24. ASPIRIN [Concomitant]
     Route: 065
  25. LOPRESSOR [Concomitant]
     Route: 065
  26. PREVACID [Concomitant]
     Route: 065
  27. NITROGLYCERIN [Concomitant]
     Route: 065
  28. CEFUROXIME [Concomitant]
     Route: 065

REACTIONS (33)
  - ABDOMINAL PAIN LOWER [None]
  - ACTINIC KERATOSIS [None]
  - ACUTE MYOCARDIAL INFARCTION [None]
  - ANGINA PECTORIS [None]
  - ANGINA UNSTABLE [None]
  - ANOREXIA [None]
  - ARTERIOSCLEROSIS CORONARY ARTERY [None]
  - ATELECTASIS [None]
  - CORONARY ARTERY DISEASE [None]
  - DIARRHOEA [None]
  - DIPLOPIA [None]
  - DIVERTICULUM [None]
  - EYE PAIN [None]
  - FACE LIFT [None]
  - HYPERLIPIDAEMIA [None]
  - HYPERTENSION [None]
  - INGROWING NAIL [None]
  - INJURY [None]
  - IRRITABLE BOWEL SYNDROME [None]
  - JOINT EFFUSION [None]
  - MENISCUS LESION [None]
  - MITRAL VALVE INCOMPETENCE [None]
  - MITRAL VALVE PROLAPSE [None]
  - MYOCARDIAL INFARCTION [None]
  - MYOCARDIAL ISCHAEMIA [None]
  - NAIL INFECTION [None]
  - PYREXIA [None]
  - RHINITIS ALLERGIC [None]
  - ROSACEA [None]
  - ROTATOR CUFF SYNDROME [None]
  - SEBORRHOEIC DERMATITIS [None]
  - SEBORRHOEIC KERATOSIS [None]
  - SINUSITIS [None]
